FAERS Safety Report 10717211 (Version 1)
Quarter: 2015Q1

REPORT INFORMATION
  Report Type: Spontaneous
  Country: US (occurrence: US)
  Receive Date: 20150116
  Receipt Date: 20150116
  Transmission Date: 20150721
  Serious: No
  Sender: FDA-Public Use
  Company Number: US-ENDO PHARMACEUTICALS INC.-HCDA20140155

PATIENT
  Sex: Female
  Weight: 71 kg

DRUGS (16)
  1. AMITRIPTYLINE HCL 10MG [Concomitant]
     Active Substance: AMITRIPTYLINE
     Route: 048
     Dates: start: 20141103
  2. CORTISONE [Concomitant]
     Active Substance: CORTISONE\HYDROCORTISONE
     Indication: RHEUMATOID ARTHRITIS
     Dosage: ONE TREATMENT
     Route: 042
     Dates: start: 201408, end: 201408
  3. CORTISONE [Concomitant]
     Active Substance: CORTISONE\HYDROCORTISONE
     Indication: HYPOAESTHESIA
  4. IBUPROFEN TABLETS 200MG [Concomitant]
     Indication: LOCAL SWELLING
  5. TYLENOL [Concomitant]
     Active Substance: ACETAMINOPHEN
     Indication: LOCAL SWELLING
  6. IBUPROFEN TABLETS 200MG [Concomitant]
     Indication: HYPOAESTHESIA
  7. CORTISONE [Concomitant]
     Active Substance: CORTISONE\HYDROCORTISONE
     Indication: LOCAL SWELLING
  8. TYLENOL [Concomitant]
     Active Substance: ACETAMINOPHEN
     Indication: PAIN IN EXTREMITY
     Dosage: UNKNOWN
     Route: 048
  9. HYDROCODONE BITARTRATE AND ACETAMINOPHEN [Suspect]
     Active Substance: ACETAMINOPHEN\HYDROCODONE BITARTRATE
     Indication: PAIN
     Dosage: 30MG/1300MG
     Route: 048
     Dates: start: 201408, end: 20141031
  10. AMITRIPTYLINE HCL 10MG [Concomitant]
     Active Substance: AMITRIPTYLINE
     Indication: PRODUCT USED FOR UNKNOWN INDICATION
     Route: 048
     Dates: start: 20141028, end: 20141102
  11. PREDNISONE TABLETS [Concomitant]
     Active Substance: PREDNISONE
     Indication: RHEUMATOID ARTHRITIS
     Dosage: UNKNOWN
     Route: 048
  12. HYDROCODONE BITARTRATE AND ACETAMINOPHEN [Suspect]
     Active Substance: ACETAMINOPHEN\HYDROCODONE BITARTRATE
     Indication: MULTIPLE FRACTURES
     Dosage: 30MG/1300MG
     Route: 048
     Dates: start: 2012
  13. HYDROCORTISONE TABLETS [Concomitant]
     Active Substance: HYDROCORTISONE
     Indication: PAIN
     Dosage: UNKNOWN
     Route: 048
  14. IBUPROFEN TABLETS 200MG [Concomitant]
     Indication: PAIN IN EXTREMITY
     Route: 048
  15. TYLENOL [Concomitant]
     Active Substance: ACETAMINOPHEN
     Indication: HYPOAESTHESIA
  16. CORTISONE [Concomitant]
     Active Substance: CORTISONE\HYDROCORTISONE
     Indication: PAIN IN EXTREMITY
     Dosage: ONE TREATMENT
     Route: 042
     Dates: start: 201410, end: 201410

REACTIONS (1)
  - Drug ineffective [Not Recovered/Not Resolved]
